FAERS Safety Report 20135003 (Version 19)
Quarter: 2023Q1

REPORT INFORMATION
  Report Type: Spontaneous
  Country: US (occurrence: US)
  Receive Date: 20211201
  Receipt Date: 20230322
  Transmission Date: 20230417
  Serious: Yes (Hospitalization, Other)
  Sender: FDA-Public Use
  Company Number: US-GLAXOSMITHKLINE-US2021AMR246193

PATIENT
  Age: 58 Year
  Sex: Female

DRUGS (2)
  1. ZEJULA [Suspect]
     Active Substance: NIRAPARIB
     Indication: Ovarian cancer
     Dosage: 200 MG, QD
     Dates: start: 202111
  2. ZEJULA [Suspect]
     Active Substance: NIRAPARIB
     Dosage: 100 MG, QD
     Dates: start: 202201

REACTIONS (20)
  - Recurrent cancer [Unknown]
  - Lung neoplasm malignant [Unknown]
  - Dyspnoea [Unknown]
  - Fatigue [Not Recovered/Not Resolved]
  - Heart rate increased [Not Recovered/Not Resolved]
  - Insomnia [Unknown]
  - Blood pressure increased [Recovering/Resolving]
  - Vomiting [Unknown]
  - Anaemia [Unknown]
  - Palpitations [Recovering/Resolving]
  - Asthenia [Unknown]
  - Middle insomnia [Unknown]
  - Loss of personal independence in daily activities [Recovering/Resolving]
  - Dry mouth [Unknown]
  - Pulmonary mass [Unknown]
  - Palpitations [Recovering/Resolving]
  - Blood pressure diastolic increased [Unknown]
  - Blood magnesium decreased [Unknown]
  - Blood potassium decreased [Unknown]
  - Carbohydrate antigen 125 increased [Not Recovered/Not Resolved]

NARRATIVE: CASE EVENT DATE: 20211213
